FAERS Safety Report 5498623-4 (Version None)
Quarter: 2007Q4

REPORT INFORMATION
  Report Type: 
  Country: None (occurrence: None)
  Receive Date: 20071024
  Receipt Date: 20071009
  Transmission Date: 20080405
  Serious: Yes (Other)
  Sender: FDA-Public Use
  Company Number: 019681

PATIENT
  Age: 8 Year
  Sex: Female

DRUGS (1)
  1. METHOTREXATE(METHOTREXATE) TABLET, MG [Suspect]
     Indication: ACUTE LYMPHOCYTIC LEUKAEMIA
     Dosage: 5 G/M2,

REACTIONS (1)
  - INTUSSUSCEPTION [None]
